FAERS Safety Report 9258701 (Version 2)
Quarter: 2013Q2

REPORT INFORMATION
  Report Type: Report from Study
  Country: CA (occurrence: CA)
  Receive Date: 20130426
  Receipt Date: 20130507
  Transmission Date: 20140414
  Serious: Yes (Other)
  Sender: FDA-Public Use
  Company Number: CA-JNJFOC-20130400442

PATIENT
  Age: 35 Year
  Sex: Female
  Weight: 70.31 kg

DRUGS (12)
  1. REMICADE [Suspect]
     Indication: COLITIS ULCERATIVE
     Route: 042
     Dates: start: 20130318
  2. REMICADE [Suspect]
     Indication: COLITIS ULCERATIVE
     Route: 042
     Dates: start: 20110609
  3. REMICADE [Suspect]
     Indication: CROHN^S DISEASE
     Route: 042
     Dates: start: 20130318
  4. REMICADE [Suspect]
     Indication: CROHN^S DISEASE
     Route: 042
     Dates: start: 20110609
  5. CODEINE [Concomitant]
     Route: 065
  6. ALESSE [Concomitant]
     Route: 065
  7. LOSEC [Concomitant]
     Route: 065
  8. ZOFRAN [Concomitant]
     Route: 065
  9. PAXIL [Concomitant]
     Route: 065
  10. FOLIC ACID [Concomitant]
     Route: 065
  11. TRAZODONE HYDROCHLORIDE [Concomitant]
     Route: 065
  12. MAXERAN [Concomitant]
     Route: 065

REACTIONS (7)
  - Crohn^s disease [Recovered/Resolved]
  - Colitis ulcerative [Recovered/Resolved]
  - Migraine [Unknown]
  - Depressed mood [Unknown]
  - Dehydration [Unknown]
  - Malaise [Unknown]
  - Drug ineffective [Unknown]
